FAERS Safety Report 4405954-5 (Version None)
Quarter: 2004Q3

REPORT INFORMATION
  Report Type: 
  Country: None (occurrence: None)
  Receive Date: 20040723
  Receipt Date: 20040218
  Transmission Date: 20050211
  Serious: Yes (Hospitalization)
  Sender: FDA-Public Use
  Company Number: US-GLAXOSMITHKLINE-A0498770A

PATIENT
  Sex: Female

DRUGS (2)
  1. AVANDIA [Suspect]
  2. INSULIN [Suspect]

REACTIONS (1)
  - CARDIAC FAILURE [None]
